FAERS Safety Report 6981037-5 (Version None)
Quarter: 2010Q3

REPORT INFORMATION
  Report Type: 
  Country: None (occurrence: None)
  Receive Date: 20100914
  Receipt Date: 20100906
  Transmission Date: 20110219
  Serious: Yes (Hospitalization)
  Sender: FDA-Public Use
  Company Number: GXKR2010ES10110

PATIENT
  Age: 34 Year
  Sex: Male

DRUGS (1)
  1. CLOZAPINE [Suspect]
     Indication: SCHIZOPHRENIA, PARANOID TYPE
     Dosage: MAXIMUM OF 200 MG/DAY

REACTIONS (17)
  - ABDOMINAL PAIN [None]
  - CACHEXIA [None]
  - COLITIS ISCHAEMIC [None]
  - CONSTIPATION [None]
  - DELIRIUM [None]
  - DIARRHOEA HAEMORRHAGIC [None]
  - FAECALOMA [None]
  - GASTROINTESTINAL HAEMORRHAGE [None]
  - HAEMATEMESIS [None]
  - HYPOTENSION [None]
  - INTESTINAL DILATATION [None]
  - INTESTINAL ULCER [None]
  - MALAISE [None]
  - MUCOSAL INFLAMMATION [None]
  - PNEUMATOSIS [None]
  - SEPTIC SHOCK [None]
  - VOMITING [None]
